FAERS Safety Report 8124855 (Version 2)
Quarter: 2013Q2

REPORT INFORMATION
  Report Type: Spontaneous
  Country: US (occurrence: None)
  Receive Date: 20110817
  Receipt Date: 20120817
  Transmission Date: 20140414
  Serious: Yes (Other)
  Sender: FDA-Public Use
  Company Number: 201110487

PATIENT
  Age: 61 Year
  Sex: Male

DRUGS (4)
  1. LIORESAL [Suspect]
     Indication: MUSCLE SPASTICITY
     Dosage: 99.89-150.14, DAILY, INTRATHECAL
     Route: 037
  2. DILAUDID [Concomitant]
  3. BUPIVICAINE [Concomitant]
  4. CLONIDINE [Concomitant]

REACTIONS (2)
  - Hypoaesthesia [None]
  - Dyspnoea [None]
